FAERS Safety Report 4862384-X (Version None)
Quarter: 2005Q4

REPORT INFORMATION
  Report Type: 
  Country: None (occurrence: None)
  Receive Date: 20051219
  Receipt Date: 20051219
  Transmission Date: 20060501
  Serious: Yes (Disabling)
  Sender: FDA-Public Use
  Company Number: None

PATIENT
  Age: 87 Year
  Sex: Female
  Weight: 68 kg

DRUGS (1)
  1. LORAZEPAM [Suspect]
     Indication: AGITATION
     Dosage: 1 MG IV    Q6H   PRN   IV BOLUS
     Route: 040
     Dates: start: 20051211, end: 20051212

REACTIONS (2)
  - LETHARGY [None]
  - LOSS OF CONSCIOUSNESS [None]
